FAERS Safety Report 6177084-6 (Version None)
Quarter: 2009Q2

REPORT INFORMATION
  Report Type: 
  Country: None (occurrence: None)
  Receive Date: 20090430
  Receipt Date: 20090430
  Transmission Date: 20091009
  Serious: Yes (Disabling, Other)
  Sender: FDA-Public Use
  Company Number: None

PATIENT
  Age: 40 Year
  Sex: Female
  Weight: 102.5129 kg

DRUGS (3)
  1. SEROQUEL [Suspect]
     Indication: BIPOLAR DISORDER
     Dosage: 400 MG BEDTIME PO YEARS
     Route: 048
     Dates: start: 20060603, end: 20090428
  2. SEROQUEL [Suspect]
     Indication: BIPOLAR I DISORDER
     Dosage: 400 MG BEDTIME PO YEARS
     Route: 048
     Dates: start: 20060603, end: 20090428
  3. SEROQUEL [Suspect]
     Indication: POST-TRAUMATIC STRESS DISORDER
     Dosage: 50 MG AM PO YEARS
     Route: 048
     Dates: start: 20060603, end: 20090428

REACTIONS (3)
  - DIABETIC NEUROPATHY [None]
  - IMPAIRED HEALING [None]
  - WOUND [None]
